FAERS Safety Report 8888348 (Version 2)
Quarter: 2012Q4

REPORT INFORMATION
  Report Type: 
  Country: JP (occurrence: JP)
  Receive Date: 20121106
  Receipt Date: 20121116
  Transmission Date: 20130627
  Serious: No
  Sender: FDA-Public Use
  Company Number: JP-PFIZER INC-2012274267

PATIENT
  Age: 82 Year
  Sex: Female

DRUGS (6)
  1. HALCION [Suspect]
     Indication: INSOMNIA
     Dosage: 0.25 mg, at bedtime  alternate day
     Route: 048
  2. AMLODIN [Concomitant]
     Indication: HYPERTENSION
     Dosage: 0.5 mg daily
     Route: 048
  3. BAYASPIRIN [Concomitant]
     Indication: CEREBRAL INFARCTION
     Dosage: 100 mg, 1x/day
     Route: 048
  4. ISALON [Concomitant]
     Indication: GASTRITIS
     Dosage: 200 mg, 1x/day
     Route: 048
  5. NAUZELIN [Concomitant]
     Indication: FEELING QUEASY
     Dosage: 30 mg daily
     Route: 048
  6. RIKKUNSHINTO [Concomitant]
     Indication: GASTRIC FUNCTION DISORDER
     Dosage: 1 DF, 1x/day
     Route: 048

REACTIONS (1)
  - Disorientation [Recovered/Resolved]
